FAERS Safety Report 9849915 (Version 1)
Quarter: 2014Q1

REPORT INFORMATION
  Report Type: Spontaneous
  Country: DK (occurrence: DK)
  Receive Date: 20140128
  Receipt Date: 20140128
  Transmission Date: 20141002
  Serious: Yes (Other)
  Sender: FDA-Public Use
  Company Number: DK-MYLANLABS-2013S1010044

PATIENT
  Sex: Female

DRUGS (1)
  1. TAMOXIFEN [Suspect]
     Indication: BREAST CANCER

REACTIONS (10)
  - Vaginal haemorrhage [Unknown]
  - Uterine cancer [Unknown]
  - Alopecia [Unknown]
  - Ageusia [Unknown]
  - Hypersensitivity [Unknown]
  - Arthralgia [Unknown]
  - Abdominal pain [Unknown]
  - Depression [Unknown]
  - Scar [Unknown]
  - Incontinence [Unknown]
